FAERS Safety Report 23321693 (Version 1)
Quarter: 2023Q4

REPORT INFORMATION
  Report Type: Spontaneous
  Country: DE (occurrence: DE)
  Receive Date: 20231220
  Receipt Date: 20231220
  Transmission Date: 20240109
  Serious: Yes (Other)
  Sender: FDA-Public Use
  Company Number: DE-Desitin-2023-02834

PATIENT
  Sex: Female

DRUGS (8)
  1. ZONISAMIDE [Suspect]
     Active Substance: ZONISAMIDE
     Indication: Generalised tonic-clonic seizure
     Dosage: 500 MILLIGRAM, QD, 200 -0- 300
     Route: 065
     Dates: end: 201606
  2. LAMOTRIGINE [Suspect]
     Active Substance: LAMOTRIGINE
     Indication: Generalised tonic-clonic seizure
     Dosage: UNK
     Route: 065
  3. LEVETIRACETAM [Suspect]
     Active Substance: LEVETIRACETAM
     Indication: Generalised tonic-clonic seizure
     Dosage: UNK
     Route: 065
  4. VALPROIC ACID [Suspect]
     Active Substance: VALPROIC ACID
     Indication: Generalised tonic-clonic seizure
     Dosage: 600 MILLIGRAM, 600 - 0- 600
     Route: 065
     Dates: end: 20160810
  5. SULTHIAME [Suspect]
     Active Substance: SULTHIAME
     Indication: Generalised tonic-clonic seizure
     Dosage: UNK
     Route: 065
  6. BRIVARACETAM [Suspect]
     Active Substance: BRIVARACETAM
     Indication: Generalised tonic-clonic seizure
     Dosage: 50 MILLIGRAM, BID,  50-0-50
     Route: 065
     Dates: start: 201602, end: 20160809
  7. BRIVARACETAM [Suspect]
     Active Substance: BRIVARACETAM
     Dosage: 75 MILLIGRAM, QD, 25-0-50
     Route: 065
     Dates: start: 20160810
  8. POTASSIUM BROMIDE [Suspect]
     Active Substance: POTASSIUM BROMIDE
     Indication: Generalised tonic-clonic seizure
     Dosage: UNK
     Route: 065

REACTIONS (7)
  - Epilepsy [Unknown]
  - Drug ineffective [Unknown]
  - Bromoderma [Unknown]
  - Weight increased [Unknown]
  - Weight decreased [Recovered/Resolved]
  - Aggression [Unknown]
  - Behaviour disorder [Unknown]
